FAERS Safety Report 10040173 (Version 1)
Quarter: 2014Q1

REPORT INFORMATION
  Report Type: Spontaneous
  Country: US (occurrence: US)
  Receive Date: 20140326
  Receipt Date: 20140326
  Transmission Date: 20141002
  Serious: Yes (Death)
  Sender: FDA-Public Use
  Company Number: US-ROCHE-1372600

PATIENT
  Age: 49 Year
  Sex: Female

DRUGS (3)
  1. XELODA [Suspect]
     Indication: GASTRIC CANCER
     Route: 048
     Dates: start: 20140206, end: 20140224
  2. MORPHINE [Concomitant]
  3. ONDANSETRON [Concomitant]

REACTIONS (1)
  - Death [Fatal]
